FAERS Safety Report 9893774 (Version 4)
Quarter: 2014Q2

REPORT INFORMATION
  Report Type: Spontaneous
  Country: US (occurrence: US)
  Receive Date: 20140213
  Receipt Date: 20140502
  Transmission Date: 20141212
  Serious: Yes (Death, Hospitalization, Other)
  Sender: FDA-Public Use
  Company Number: US-009507513-1402USA004135

PATIENT
  Sex: Female

DRUGS (3)
  1. FOSAMAX [Suspect]
     Indication: OSTEOPOROSIS
     Dosage: 70 MG, WEEKLY
     Route: 048
     Dates: start: 200501, end: 200712
  2. FOSAMAX [Suspect]
     Dosage: 35 MG, WEEKLY
     Route: 048
     Dates: start: 20070504
  3. ALENDRONATE SODIUM [Suspect]
     Indication: OSTEOPOROSIS
     Dosage: 70 MG, WEEKLY
     Route: 048
     Dates: end: 20080714

REACTIONS (12)
  - Femur fracture [Unknown]
  - Intramedullary rod insertion [Unknown]
  - Death [Fatal]
  - Mastectomy [Unknown]
  - Low turnover osteopathy [Unknown]
  - Myopathy [Unknown]
  - Osteopenia [Unknown]
  - Hysterectomy [Unknown]
  - Diverticulitis [Unknown]
  - Aortic calcification [Unknown]
  - Vascular calcification [Unknown]
  - Dyspnoea [Unknown]
